FAERS Safety Report 21595998 (Version 1)
Quarter: 2022Q4

REPORT INFORMATION
  Report Type: Spontaneous
  Country: US (occurrence: US)
  Receive Date: 20221115
  Receipt Date: 20221115
  Transmission Date: 20230113
  Serious: No
  Sender: FDA-Public Use
  Company Number: US-drreddys-SPO/USA/22/0157010

PATIENT
  Age: 66 Year
  Sex: Male

DRUGS (4)
  1. TACROLIMUS [Interacting]
     Active Substance: TACROLIMUS
     Indication: Product used for unknown indication
     Dosage: 4-8 NG/ML
  2. RITONAVIR [Interacting]
     Active Substance: RITONAVIR
     Indication: Antiviral treatment
     Route: 048
  3. MYCOPHENOLATE MOFETIL [Concomitant]
     Active Substance: MYCOPHENOLATE MOFETIL
     Indication: Product used for unknown indication
  4. NIRMATRELVIR [Concomitant]
     Active Substance: NIRMATRELVIR
     Indication: Antiviral treatment
     Route: 048

REACTIONS (3)
  - Drug level increased [Unknown]
  - Drug interaction [Unknown]
  - Blood creatinine increased [Unknown]
